FAERS Safety Report 22389996 (Version 1)
Quarter: 2023Q2

REPORT INFORMATION
  Report Type: Spontaneous
  Country: US (occurrence: None)
  Receive Date: 20230531
  Receipt Date: 20230531
  Transmission Date: 20230721
  Serious: Yes (Death)
  Sender: FDA-Public Use
  Company Number: None

PATIENT
  Age: 53 Year
  Sex: Female
  Weight: 97.52 kg

DRUGS (12)
  1. AKYNZEO (FOSNETUPITANT\PALONOSETRON HYDROCHLORIDE) [Suspect]
     Active Substance: FOSNETUPITANT\PALONOSETRON HYDROCHLORIDE
     Indication: Breast cancer female
     Dosage: 235-025MG D1 + 8Q21D IV
     Route: 042
     Dates: start: 202105, end: 20230518
  2. CARBOPLATIN [Concomitant]
     Active Substance: CARBOPLATIN
  3. DEXAMETHASONE [Concomitant]
  4. DIPHENHYDRAMINE HYDROCHLORIDE [Concomitant]
     Active Substance: DIPHENHYDRAMINE HYDROCHLORIDE
  5. DOCETAXEL [Concomitant]
     Active Substance: DOCETAXEL
  6. DOXORUBICIN [Concomitant]
  7. EPINEPHRINE [Concomitant]
  8. FAMOTIDINE [Concomitant]
  9. GRANISETRON [Concomitant]
     Active Substance: GRANISETRON
  10. METHYLPREDNISOLONE [Concomitant]
     Active Substance: METHYLPREDNISOLONE
  11. NEULASTA [Concomitant]
     Active Substance: PEGFILGRASTIM
  12. OLANZAPINE [Concomitant]

REACTIONS (1)
  - Death [None]

NARRATIVE: CASE EVENT DATE: 20230518
